FAERS Safety Report 7083431-3 (Version None)
Quarter: 2010Q4

REPORT INFORMATION
  Report Type: 
  Country: None (occurrence: None)
  Receive Date: 20101104
  Receipt Date: 20101101
  Transmission Date: 20110411
  Serious: Yes (Congenital Anomaly)
  Sender: FDA-Public Use
  Company Number: A0890540A

PATIENT
  Sex: Male

DRUGS (5)
  1. PAXIL [Suspect]
     Dates: start: 20050125
  2. PAXIL CR [Suspect]
  3. PAROXETINE HYDROCHLORIDE [Suspect]
     Dosage: 10MG PER DAY
  4. PRENATAL VITAMINS [Concomitant]
     Dates: start: 20050125
  5. ALBUTEROL [Concomitant]

REACTIONS (4)
  - CONGENITAL FLAT FEET [None]
  - CRYPTORCHISM [None]
  - DRUG EXPOSURE DURING PREGNANCY [None]
  - FEMORAL ANTEVERSION [None]
